FAERS Safety Report 12111159 (Version 1)
Quarter: 2016Q1

REPORT INFORMATION
  Report Type: Spontaneous
  Country: US (occurrence: US)
  Receive Date: 20160224
  Receipt Date: 20160224
  Transmission Date: 20160526
  Serious: Yes (Other)
  Sender: FDA-Public Use
  Company Number: US-BAYER-2016-033518

PATIENT
  Age: 31 Year
  Sex: Female

DRUGS (1)
  1. MIRENA [Suspect]
     Active Substance: LEVONORGESTREL
     Indication: CONTRACEPTION
     Dosage: 20 MCG/24HR, CONT
     Route: 015
     Dates: start: 20160120, end: 20160202

REACTIONS (7)
  - Procedural pain [Recovering/Resolving]
  - Procedural headache [Recovering/Resolving]
  - Post procedural discomfort [Recovering/Resolving]
  - Medical device pain [Recovering/Resolving]
  - Post procedural haemorrhage [Recovering/Resolving]
  - Menorrhagia [Recovering/Resolving]
  - Device expulsion [Recovered/Resolved]

NARRATIVE: CASE EVENT DATE: 201602
